FAERS Safety Report 9272165 (Version 1)
Quarter: 2013Q2

REPORT INFORMATION
  Report Type: Spontaneous
  Country: US (occurrence: US)
  Receive Date: 20130506
  Receipt Date: 20130506
  Transmission Date: 20140414
  Serious: Yes (Other)
  Sender: FDA-Public Use
  Company Number: PHHY2013US042699

PATIENT
  Age: 13 Year
  Sex: 0

DRUGS (2)
  1. IBUPROFEN [Suspect]
  2. ACETYLSALICYLIC ACID [Suspect]

REACTIONS (4)
  - Blindness [Recovered/Resolved]
  - Intraocular pressure increased [Recovered/Resolved]
  - Stevens-Johnson syndrome [Recovered/Resolved]
  - Toxic epidermal necrolysis [Recovered/Resolved]
